FAERS Safety Report 9780951 (Version 2)
Quarter: 2014Q1

REPORT INFORMATION
  Report Type: Spontaneous
  Country: JP (occurrence: None)
  Receive Date: 20131220
  Receipt Date: 20140106
  Transmission Date: 20141002
  Serious: Yes (Death)
  Sender: FDA-Public Use
  Company Number: JP-014038

PATIENT
  Sex: Male

DRUGS (1)
  1. DEGARELIX [Suspect]
     Indication: PROSTATE CANCER
     Dosage: 1X/MONTH
     Route: 058

REACTIONS (2)
  - Intentional drug misuse [None]
  - Bone marrow failure [None]
